FAERS Safety Report 7280899-4 (Version None)
Quarter: 2011Q1

REPORT INFORMATION
  Report Type: 
  Country: None (occurrence: None)
  Receive Date: 20110207
  Receipt Date: 20110207
  Transmission Date: 20110831
  Serious: No
  Sender: FDA-Public Use
  Company Number: None

PATIENT
  Age: 48 Year
  Sex: Male
  Weight: 108.8633 kg

DRUGS (1)
  1. ALCOHOL SWABS W/PAIN RELIEF 6% BENZOCAINE, 70% ISOPROPYL RELION [Suspect]
     Dosage: ONE SWAB AS NEEDED TOP
     Route: 061
     Dates: start: 20110203, end: 20110205

REACTIONS (3)
  - NAUSEA [None]
  - DIARRHOEA [None]
  - PRODUCT QUALITY ISSUE [None]
